FAERS Safety Report 18578445 (Version 1)
Quarter: 2020Q4

REPORT INFORMATION
  Report Type: Spontaneous
  Country: US (occurrence: US)
  Receive Date: 20201202
  Receipt Date: 20201202
  Transmission Date: 20210114
  Serious: Yes (Hospitalization)
  Sender: FDA-Public Use
  Company Number: None

PATIENT
  Age: 75 Year
  Sex: Female

DRUGS (1)
  1. BOSENTAN 125MG TABLETS 60/BO: (TEVA) [Suspect]
     Active Substance: BOSENTAN
     Indication: PULMONARY ARTERIAL HYPERTENSION
     Route: 048
     Dates: start: 20190710

REACTIONS (5)
  - COVID-19 pneumonia [None]
  - Respiratory failure [None]
  - Aspiration [None]
  - Pulmonary embolism [None]
  - Supraventricular tachycardia [None]

NARRATIVE: CASE EVENT DATE: 20201124
